FAERS Safety Report 5287177-3 (Version None)
Quarter: 2007Q2

REPORT INFORMATION
  Report Type: 
  Country: None (occurrence: None)
  Receive Date: 20070404
  Receipt Date: 20070317
  Transmission Date: 20071010
  Serious: Yes (Other)
  Sender: FDA-Public Use
  Company Number: US-PFIZER INC-2007022346

PATIENT
  Sex: Female
  Weight: 108.9 kg

DRUGS (2)
  1. GEODON [Suspect]
     Indication: BIPOLAR DISORDER
     Dates: start: 20070316, end: 20070317
  2. LAMICTAL [Concomitant]

REACTIONS (5)
  - ANXIETY [None]
  - PANIC REACTION [None]
  - SWOLLEN TONGUE [None]
  - TONGUE PARALYSIS [None]
  - TRISMUS [None]
